FAERS Safety Report 9433085 (Version 1)
Quarter: 2013Q3

REPORT INFORMATION
  Report Type: Spontaneous
  Country: US (occurrence: US)
  Receive Date: 20130731
  Receipt Date: 20130731
  Transmission Date: 20140515
  Serious: Yes (Death, Hospitalization, Other)
  Sender: FDA-Public Use
  Company Number: US-WATSON-2013-12979

PATIENT
  Age: 64 Year
  Sex: Female

DRUGS (2)
  1. HYDROXYCHLOROQUINE SULFATE (WATSON LABORATORIES) [Suspect]
     Indication: RHEUMATOID ARTHRITIS
     Dosage: 400 MG, DAILY
     Route: 065
  2. HYDROXYCHLOROQUINE SULFATE (WATSON LABORATORIES) [Suspect]
     Dosage: 200 MG, DAILY
     Route: 065

REACTIONS (5)
  - Cardiomyopathy [Fatal]
  - Cardiac failure [Fatal]
  - Atrial fibrillation [Unknown]
  - Sick sinus syndrome [Unknown]
  - Myopathy [Not Recovered/Not Resolved]
